FAERS Safety Report 4956663-5 (Version None)
Quarter: 2006Q1

REPORT INFORMATION
  Report Type: 
  Country: None (occurrence: None)
  Receive Date: 20060323
  Receipt Date: 20060310
  Transmission Date: 20060701
  Serious: Yes (Congenital Anomaly, Other)
  Sender: FDA-Public Use
  Company Number: S06-GER-01001-01

PATIENT

DRUGS (3)
  1. CIPRALEX (ESCITALOPRAM) [Suspect]
     Indication: DEPRESSION
     Dosage: TABLET
  2. LITHIUM [Suspect]
     Indication: BIPOLAR DISORDER
  3. QUETIAPINE [Suspect]
     Indication: BIPOLAR DISORDER

REACTIONS (2)
  - TRANSMISSION OF DRUG VIA SEMEN [None]
  - TRISOMY 21 [None]
